FAERS Safety Report 7685774-9 (Version None)
Quarter: 2011Q3

REPORT INFORMATION
  Report Type: 
  Country: None (occurrence: None)
  Receive Date: 20110815
  Receipt Date: 20110815
  Transmission Date: 20111222
  Serious: Yes (Death, Life-Threatening, Hospitalization)
  Sender: FDA-Public Use
  Company Number: None

PATIENT
  Age: 83 Year
  Sex: Male
  Weight: 97 kg

DRUGS (1)
  1. AMIODARONE HCL [Suspect]
     Indication: ATRIAL FIBRILLATION
     Dosage: 200MG
     Route: 048

REACTIONS (10)
  - NAUSEA [None]
  - DEEP VEIN THROMBOSIS [None]
  - WEIGHT DECREASED [None]
  - MALNUTRITION [None]
  - RENAL FAILURE [None]
  - TOXICITY TO VARIOUS AGENTS [None]
  - PRODUCT TASTE ABNORMAL [None]
  - HYPERTENSION [None]
  - CORONARY ARTERY DISEASE [None]
  - RESPIRATORY DISORDER [None]
